FAERS Safety Report 8110707 (Version 5)
Quarter: 2013Q1

REPORT INFORMATION
  Report Type: Report from Study
  Country: JP (occurrence: JP)
  Receive Date: 20110829
  Receipt Date: 20130313
  Transmission Date: 20140127
  Serious: Yes (Hospitalization, Other)
  Sender: FDA-Public Use
  Company Number: JP-BRISTOL-MYERS SQUIBB COMPANY-15998420

PATIENT
  Age: 70 Year
  Sex: Female

DRUGS (13)
  1. ORENCIA FOR INJ 250 MG/VIAL [Suspect]
     Indication: RHEUMATOID ARTHRITIS
     Dosage: DATE OF ADMIN: 11MAR11, 24MAR11, 15APR11.
     Route: 041
     Dates: start: 20110225
  2. MEDROL [Concomitant]
     Indication: RHEUMATOID ARTHRITIS
     Route: 048
  3. VOLTAREN [Concomitant]
     Indication: RHEUMATOID ARTHRITIS
     Dosage: VOLTAREN TAPE AND VOLTAREN SUPPO
  4. FELBINAC [Concomitant]
     Indication: RHEUMATOID ARTHRITIS
  5. NEUROTROPIN [Concomitant]
  6. BRUFEN [Concomitant]
     Indication: RHEUMATOID ARTHRITIS
  7. URSO [Concomitant]
  8. METHYCOBAL [Concomitant]
  9. LIPITOR [Concomitant]
  10. MARZULENE-S [Concomitant]
  11. GASTER [Concomitant]
  12. CHINESE HERBS [Concomitant]
  13. MUCOSOLVAN [Concomitant]

REACTIONS (3)
  - Pleural effusion [Recovered/Resolved]
  - Atelectasis [Recovered/Resolved]
  - Femur fracture [Recovered/Resolved]
